FAERS Safety Report 12790153 (Version 1)
Quarter: 2016Q3

REPORT INFORMATION
  Report Type: Spontaneous
  Country: US (occurrence: US)
  Receive Date: 20160928
  Receipt Date: 20160928
  Transmission Date: 20161109
  Serious: No
  Sender: FDA-Public Use
  Company Number: US-TEVA-691002ACC

PATIENT
  Age: 35 Year
  Sex: Female
  Weight: 56.3 kg

DRUGS (2)
  1. LEVOCETIRINE [Concomitant]
     Indication: URTICARIA
  2. PLAN B ONE-STEP [Suspect]
     Active Substance: LEVONORGESTREL
     Indication: POST COITAL CONTRACEPTION
     Dates: start: 20160824, end: 20160824

REACTIONS (2)
  - Hot flush [Recovered/Resolved]
  - Vaginal haemorrhage [Not Recovered/Not Resolved]

NARRATIVE: CASE EVENT DATE: 20160829
